FAERS Safety Report 8287689-4 (Version None)
Quarter: 2012Q2

REPORT INFORMATION
  Report Type: 
  Country: None (occurrence: None)
  Receive Date: 20120416
  Receipt Date: 20120411
  Transmission Date: 20120825
  Serious: Yes (Other)
  Sender: FDA-Public Use
  Company Number: PHHY2010CA15390

PATIENT
  Sex: Female

DRUGS (7)
  1. AMOXIL [Concomitant]
     Dosage: UNK UKN, UNK
  2. ACETYLSALICYLIC ACID SRT [Concomitant]
     Dosage: UNK UKN, UNK
  3. ZOLEDRONOC ACID [Suspect]
     Indication: OSTEOPOROSIS
     Dosage: 5 MG,
     Route: 042
     Dates: start: 20100101
  4. BIAXIN [Concomitant]
     Dosage: UNK UKN, UNK
  5. LIPITOR [Concomitant]
     Dosage: UNK UKN, UNK
  6. ZOLEDRONOC ACID [Suspect]
     Dosage: 5 MG,
     Route: 042
     Dates: start: 20110503
  7. CALCIUM CARBONATE [Concomitant]
     Dosage: UNK UKN, UNK

REACTIONS (8)
  - TOOTH INFECTION [None]
  - LABYRINTHITIS [None]
  - SWELLING [None]
  - NODULE [None]
  - APHAGIA [None]
  - BRONCHITIS [None]
  - HEADACHE [None]
  - OSTEOMYELITIS [None]
